FAERS Safety Report 5109556-7 (Version None)
Quarter: 2006Q3

REPORT INFORMATION
  Report Type: 
  Country: None (occurrence: None)
  Receive Date: 20060918
  Receipt Date: 20060831
  Transmission Date: 20061208
  Serious: Yes (Other)
  Sender: FDA-Public Use
  Company Number: GB200608006803

PATIENT
  Age: 9 Year
  Sex: Male

DRUGS (1)
  1. STRATTERA [Suspect]
     Indication: ATTENTION DEFICIT/HYPERACTIVITY DISORDER
     Dosage: 28 MG, DAILY (1/D)
     Dates: start: 20040901

REACTIONS (2)
  - CONVULSION [None]
  - ELECTROENCEPHALOGRAM ABNORMAL [None]
